FAERS Safety Report 24667071 (Version 2)
Quarter: 2024Q4

REPORT INFORMATION
  Report Type: Report from Study
  Country: GB (occurrence: GB)
  Receive Date: 20241126
  Receipt Date: 20241128
  Transmission Date: 20250115
  Serious: Yes (Death)
  Sender: PFIZER
  Company Number: GB-PFIZER INC-PV202400152635

PATIENT

DRUGS (4)
  1. CISPLATIN [Suspect]
     Active Substance: CISPLATIN
     Indication: Bladder cancer
     Dosage: 70 MG/M2, WERE GIVEN ON DAY 1, EVERY 3 WEEKS
     Route: 042
  2. GEMCITABINE HYDROCHLORIDE [Suspect]
     Active Substance: GEMCITABINE HYDROCHLORIDE
     Indication: Bladder cancer
     Dosage: 1000 MG/M2 WAS GIVEN ON DAY 1 AND DAY 8 EVERY 3 WEEKS
     Route: 042
  3. DURVALUMAB [Suspect]
     Active Substance: DURVALUMAB
     Indication: Bladder cancer
     Dosage: 1500 MG, FOUR CYCLES
     Route: 042
  4. DURVALUMAB [Suspect]
     Active Substance: DURVALUMAB
     Dosage: 1500 MG, EVERY 4 WEEKS (UP TO EIGHT CYCLES)
     Route: 042

REACTIONS (1)
  - Cardio-respiratory arrest [Fatal]
